FAERS Safety Report 14651814 (Version 3)
Quarter: 2019Q3

REPORT INFORMATION
  Report Type: Spontaneous
  Country: GB (occurrence: GB)
  Receive Date: 20180317
  Receipt Date: 20190812
  Transmission Date: 20191004
  Serious: Yes (Congenital Anomaly, Other)
  Sender: FDA-Public Use
  Company Number: GB-AUROBINDO-AUR-APL-2018-014520

PATIENT

DRUGS (3)
  1. ABACAVIR+LAMIVUDINE [Suspect]
     Active Substance: ABACAVIR SULFATE\LAMIVUDINE
     Indication: HIV INFECTION
     Dosage: 1 DOSAGE FORM, ONCE A DAY, QD
     Route: 064
  2. PREZCOBIX [Suspect]
     Active Substance: COBICISTAT\DARUNAVIR ETHANOLATE
     Indication: HIV INFECTION
     Dosage: 1 DOSAGE FORM, ONCE A DAY, QD
     Route: 064
  3. PREGNACARE [Concomitant]
     Active Substance: MINERALS\VITAMINS
     Indication: VITAMIN SUPPLEMENTATION
     Dosage: UNK
     Route: 064

REACTIONS (3)
  - Limb reduction defect [Not Recovered/Not Resolved]
  - Foetal exposure during pregnancy [Unknown]
  - Amniotic band syndrome [Not Recovered/Not Resolved]
